FAERS Safety Report 24987380 (Version 1)
Quarter: 2025Q1

REPORT INFORMATION
  Report Type: Spontaneous
  Country: US (occurrence: US)
  Receive Date: 20250219
  Receipt Date: 20250219
  Transmission Date: 20250409
  Serious: No
  Sender: EYWA PHARMA INC.
  Company Number: US-Eywa Pharma Inc.-2170504

PATIENT
  Sex: Male

DRUGS (3)
  1. ALBUTEROL [Suspect]
     Active Substance: ALBUTEROL
     Indication: Influenza
  2. TAMIFLU [Suspect]
     Active Substance: OSELTAMIVIR PHOSPHATE
  3. AZITHROMYCIN ANHYDROUS [Suspect]
     Active Substance: AZITHROMYCIN ANHYDROUS

REACTIONS (4)
  - Cough [Unknown]
  - Product use in unapproved indication [Unknown]
  - Respiratory tract infection [Unknown]
  - Pyrexia [Unknown]
